FAERS Safety Report 22363867 (Version 1)
Quarter: 2023Q2

REPORT INFORMATION
  Report Type: Spontaneous
  Country: KZ (occurrence: KZ)
  Receive Date: 20230525
  Receipt Date: 20230525
  Transmission Date: 20230721
  Serious: Yes (Other)
  Sender: FDA-Public Use
  Company Number: KZ-BAYER-2023A072349

PATIENT
  Age: 76 Year
  Sex: Male

DRUGS (3)
  1. RIVAROXABAN [Suspect]
     Active Substance: RIVAROXABAN
     Indication: Prophylaxis
     Dosage: 2.5 MG, BID
     Route: 048
     Dates: start: 202212
  2. RIVAROXABAN [Suspect]
     Active Substance: RIVAROXABAN
     Indication: Myocardial ischaemia
     Route: 048
  3. CARDIOMAGNYL [Concomitant]
     Active Substance: ASPIRIN\MAGNESIUM HYDROXIDE
     Dosage: 75 MG, QD

REACTIONS (2)
  - Haemoglobin increased [Unknown]
  - Drug ineffective [Unknown]

NARRATIVE: CASE EVENT DATE: 20230101
